FAERS Safety Report 9167704 (Version 3)
Quarter: 2014Q2

REPORT INFORMATION
  Report Type: Spontaneous
  Country: CN (occurrence: CN)
  Receive Date: 20130318
  Receipt Date: 20140512
  Transmission Date: 20141212
  Serious: Yes (Other)
  Sender: FDA-Public Use
  Company Number: PHHY2013CN025440

PATIENT
  Age: 113 Year
  Sex: Female

DRUGS (1)
  1. MIACALCIC [Suspect]
     Route: 045
     Dates: start: 20130312, end: 20130312

REACTIONS (3)
  - Angle closure glaucoma [Unknown]
  - Blindness transient [Unknown]
  - Glaucoma [Unknown]
